FAERS Safety Report 7354132-9 (Version None)
Quarter: 2011Q1

REPORT INFORMATION
  Report Type: 
  Country: None (occurrence: None)
  Receive Date: 20110315
  Receipt Date: 20110304
  Transmission Date: 20110831
  Serious: Yes (Life-Threatening, Hospitalization)
  Sender: FDA-Public Use
  Company Number: JP-BRISTOL-MYERS SQUIBB COMPANY-15592066

PATIENT
  Age: 87 Year
  Sex: Male

DRUGS (12)
  1. MAGLAX [Concomitant]
     Dosage: FINE GRANULES
  2. ASPENON [Suspect]
     Dosage: CAPSULE
     Route: 048
     Dates: end: 20100812
  3. LIPITOR [Concomitant]
     Dosage: TABS
  4. CIBENOL TABS [Suspect]
     Route: 048
     Dates: end: 20100812
  5. LASIX [Concomitant]
     Route: 048
  6. PLAVIX [Suspect]
     Route: 048
     Dates: end: 20100812
  7. SIGMART [Concomitant]
     Route: 048
  8. DIOVAN [Concomitant]
     Route: 048
  9. WARFARIN SODIUM [Suspect]
     Route: 048
     Dates: end: 20100812
  10. AMLODIPINE [Concomitant]
     Route: 048
  11. ARICEPT [Concomitant]
     Dosage: ORODISPERSIBLE CR TABS
     Route: 048
  12. GASTER [Concomitant]
     Dosage: ORODISPERSIBLE CR TABS
     Route: 048

REACTIONS (9)
  - DEMENTIA [None]
  - BLOOD PRESSURE DECREASED [None]
  - DEPRESSED LEVEL OF CONSCIOUSNESS [None]
  - GASTROINTESTINAL HAEMORRHAGE [None]
  - ANAEMIA [None]
  - CHEST DISCOMFORT [None]
  - VENTRICULAR TACHYCARDIA [None]
  - RENAL IMPAIRMENT [None]
  - TOXICITY TO VARIOUS AGENTS [None]
